FAERS Safety Report 25724667 (Version 1)
Quarter: 2025Q3

REPORT INFORMATION
  Report Type: Spontaneous
  Country: US (occurrence: US)
  Receive Date: 20250826
  Receipt Date: 20250826
  Transmission Date: 20251021
  Serious: Yes (Other)
  Sender: CHEPLAPHARM
  Company Number: US-CHEPLA-2025010091

PATIENT
  Age: 30 Year

DRUGS (16)
  1. OLANZAPINE [Suspect]
     Active Substance: OLANZAPINE
  2. OLANZAPINE [Suspect]
     Active Substance: OLANZAPINE
     Route: 042
  3. QUETIAPINE [Suspect]
     Active Substance: QUETIAPINE
  4. ESCITALOPRAM [Suspect]
     Active Substance: ESCITALOPRAM OXALATE
  5. MIRTAZAPINE [Suspect]
     Active Substance: MIRTAZAPINE
  6. TRAZODONE [Suspect]
     Active Substance: TRAZODONE HYDROCHLORIDE
  7. VALPROATE [Concomitant]
     Active Substance: VALPROIC ACID
  8. SELEGILINE [Concomitant]
     Active Substance: SELEGILINE
  9. KETAMINE [Concomitant]
     Active Substance: KETAMINE
     Route: 042
  10. METHYLPHENIDATE [Concomitant]
     Active Substance: METHYLPHENIDATE
  11. BUPRENORPHINE [Concomitant]
     Active Substance: BUPRENORPHINE
     Indication: Borderline personality disorder
  12. NALOXONE [Concomitant]
     Active Substance: NALOXONE
     Indication: Borderline personality disorder
  13. HYDROMORPHONE [Concomitant]
     Active Substance: HYDROMORPHONE
     Indication: Pain
     Route: 048
  14. HYDROMORPHONE [Concomitant]
     Active Substance: HYDROMORPHONE
     Indication: Pain
     Route: 042
  15. LORAZEPAM [Concomitant]
     Active Substance: LORAZEPAM
     Indication: Borderline personality disorder
  16. GABAPENTIN [Concomitant]
     Active Substance: GABAPENTIN

REACTIONS (6)
  - Ileus [Recovered/Resolved]
  - Delirium [Unknown]
  - Renal impairment [Unknown]
  - Gastric atony [Unknown]
  - Respiration abnormal [Unknown]
  - Off label use [Unknown]
